FAERS Safety Report 7980976-6 (Version None)
Quarter: 2011Q4

REPORT INFORMATION
  Report Type: 
  Country: None (occurrence: None)
  Receive Date: 20111215
  Receipt Date: 20111206
  Transmission Date: 20120403
  Serious: No
  Sender: FDA-Public Use
  Company Number: US-BIOGENIDEC-2010BI030972

PATIENT
  Age: 33 Year
  Sex: Female

DRUGS (5)
  1. TYSABRI [Suspect]
     Indication: MULTIPLE SCLEROSIS
     Route: 042
     Dates: start: 20100901, end: 20110912
  2. NAPROXEN (ALEVE) [Concomitant]
     Indication: HEADACHE
     Route: 048
  3. VICODIN [Concomitant]
     Indication: HEADACHE
  4. PERCOCET [Concomitant]
     Indication: HEADACHE
  5. SOLU-MEDROL [Concomitant]
     Indication: MULTIPLE SCLEROSIS
     Route: 042
     Dates: start: 20110914

REACTIONS (10)
  - MYALGIA [None]
  - TREMOR [None]
  - HEADACHE [None]
  - MUSCLE SPASMS [None]
  - PYREXIA [None]
  - BLOOD PRESSURE DECREASED [None]
  - ANAEMIA [None]
  - FATIGUE [None]
  - EYE PAIN [None]
  - ABDOMINAL PAIN UPPER [None]
